FAERS Safety Report 11309166 (Version 3)
Quarter: 2015Q3

REPORT INFORMATION
  Report Type: Spontaneous
  Country: US (occurrence: US)
  Receive Date: 20150724
  Receipt Date: 20150828
  Transmission Date: 20151125
  Serious: Yes (Hospitalization, Other)
  Sender: FDA-Public Use
  Company Number: US-009507513-1507USA010878

PATIENT
  Sex: Female

DRUGS (7)
  1. FOSAMAX [Suspect]
     Active Substance: ALENDRONATE SODIUM
     Indication: OSTEOPOROSIS
     Dosage: 70 MG, UNK
     Route: 048
     Dates: start: 20010330, end: 20050110
  2. CALCIUM (UNSPECIFIED) [Concomitant]
     Active Substance: CALCIUM
     Indication: ROUTINE HEALTH MAINTENANCE
     Dosage: 1 DF, QD
     Route: 065
     Dates: start: 2000
  3. VITAMINS (UNSPECIFIED) [Concomitant]
     Active Substance: VITAMINS
     Indication: ROUTINE HEALTH MAINTENANCE
     Dosage: 1 DF, QD
     Route: 065
     Dates: start: 2000
  4. FOSAMAX [Suspect]
     Active Substance: ALENDRONATE SODIUM
     Indication: OSTEOPOROSIS PROPHYLAXIS
  5. HORMONES (UNSPECIFIED) [Concomitant]
     Active Substance: UNSPECIFIED INGREDIENT
     Indication: PRODUCT USED FOR UNKNOWN INDICATION
     Dosage: UNK
     Route: 065
     Dates: start: 1986, end: 2015
  6. BONIVA [Suspect]
     Active Substance: IBANDRONATE SODIUM
     Indication: OSTEOPOROSIS PROPHYLAXIS
     Dosage: 150 MG, UNK
     Route: 048
     Dates: start: 20070606, end: 20120511
  7. MAGNESIUM (UNSPECIFIED) [Concomitant]
     Active Substance: MAGNESIUM
     Indication: ROUTINE HEALTH MAINTENANCE
     Dosage: 1 DF, QD
     Route: 065
     Dates: start: 2000

REACTIONS (25)
  - Diabetes mellitus [Unknown]
  - Osteoarthritis [Unknown]
  - Coronary artery disease [Unknown]
  - Atypical femur fracture [Unknown]
  - Infection [Unknown]
  - Cystocele [Unknown]
  - Anxiety [Unknown]
  - Essential hypertension [Unknown]
  - Ankle fracture [Unknown]
  - Constipation [Unknown]
  - Inflammation [Unknown]
  - Rectocele [Unknown]
  - Gastrooesophageal reflux disease [Unknown]
  - Low turnover osteopathy [Unknown]
  - Neuralgia [Unknown]
  - Colectomy [Unknown]
  - Depression [Unknown]
  - Acne [Unknown]
  - Appendicectomy [Unknown]
  - Neuropathy peripheral [Unknown]
  - Hysterectomy [Unknown]
  - Infection [Unknown]
  - Pain [Not Recovered/Not Resolved]
  - Myalgia [Unknown]
  - Herpes virus infection [Unknown]

NARRATIVE: CASE EVENT DATE: 2007
